FAERS Safety Report 20933891 (Version 4)
Quarter: 2022Q4

REPORT INFORMATION
  Report Type: Spontaneous
  Country: US (occurrence: US)
  Receive Date: 20220608
  Receipt Date: 20221201
  Transmission Date: 20230113
  Serious: Yes (Other)
  Sender: FDA-Public Use
  Company Number: US-PFIZER INC-202200809237

PATIENT
  Age: 66 Year
  Sex: Male

DRUGS (1)
  1. XELJANZ XR [Suspect]
     Active Substance: TOFACITINIB CITRATE
     Dosage: 11 MG

REACTIONS (5)
  - Rheumatoid arthritis [Unknown]
  - Product dose omission issue [Unknown]
  - Product dose omission in error [Unknown]
  - Musculoskeletal stiffness [Recovering/Resolving]
  - Joint stiffness [Unknown]
